FAERS Safety Report 7486980 (Version 8)
Quarter: 2013Q1

REPORT INFORMATION
  Report Type: Report from Study
  Country: US (occurrence: US)
  Receive Date: 20100719
  Receipt Date: 20130222
  Transmission Date: 20140127
  Serious: Yes (Hospitalization)
  Sender: FDA-Public Use
  Company Number: US-BRISTOL-MYERS SQUIBB COMPANY-15193618

PATIENT
  Age: 26 Year
  Sex: Female

DRUGS (20)
  1. REYATAZ [Suspect]
     Indication: HIV INFECTION
     Dates: start: 20091014, end: 20100108
  2. COMBIVIR [Suspect]
     Indication: HIV INFECTION
     Dates: start: 20091014, end: 20100108
  3. NORVIR [Suspect]
     Indication: HIV INFECTION
     Dates: start: 20091014, end: 20100108
  4. TRUVADA [Suspect]
     Indication: HIV INFECTION
     Dates: start: 20100108
  5. EMTRICITABINE [Suspect]
     Indication: HIV INFECTION
  6. VIREAD [Suspect]
     Indication: HIV INFECTION
  7. PANADO [Concomitant]
     Indication: PAIN
     Dosage: 12NOV09-18NOV09?ALSO ON 23SEP11-15APR2012
     Dates: start: 20091112, end: 20120415
  8. PANADO [Concomitant]
     Indication: HEADACHE
     Dosage: 12NOV09-18NOV09?ALSO ON 23SEP11-15APR2012
     Dates: start: 20091112, end: 20120415
  9. PANADO [Concomitant]
     Indication: ANALGESIC THERAPY
     Dosage: 12NOV09-18NOV09?ALSO ON 23SEP11-15APR2012
     Dates: start: 20091112, end: 20120415
  10. MULTIVITAMIN [Concomitant]
     Dates: start: 20100108
  11. ADCO-DOL [Concomitant]
     Indication: ANALGESIC THERAPY
     Dates: start: 20100317, end: 201005
  12. CALCIUM + VITAMIN D [Concomitant]
     Dates: start: 201005
  13. VITAMIN C [Concomitant]
     Dates: start: 201005
  14. BUSCOPAN [Concomitant]
     Indication: DIARRHOEA
     Dates: start: 20100515, end: 20100522
  15. BUSCOPAN [Concomitant]
     Indication: GASTROENTERITIS
     Dates: start: 20100515, end: 20100522
  16. VITAMIN B COMPLEX [Concomitant]
     Indication: VITAMIN SUPPLEMENTATION
     Dates: start: 20100407
  17. TORADOL [Concomitant]
     Indication: GASTROENTERITIS
     Dates: start: 20100515, end: 20100522
  18. FOLATE [Concomitant]
     Dates: start: 20110330, end: 20120321
  19. ZOFRAN [Concomitant]
     Indication: GASTROENTERITIS
     Dosage: THERAPY DATES: 30MAR11
     Dates: start: 20100515, end: 20100525
  20. FERROUS FUMARATE [Concomitant]
     Dates: start: 20110923, end: 20120321

REACTIONS (2)
  - Anxiety [Recovered/Resolved]
  - Vomiting [Recovered/Resolved]
